FAERS Safety Report 8000969-2 (Version None)
Quarter: 2011Q4

REPORT INFORMATION
  Report Type: 
  Country: None (occurrence: None)
  Receive Date: 20111219
  Receipt Date: 20111205
  Transmission Date: 20120403
  Serious: Yes (Hospitalization)
  Sender: FDA-Public Use
  Company Number: 2011MA017224

PATIENT
  Sex: Male

DRUGS (33)
  1. ADVAIR DISKUS 100/50 [Concomitant]
  2. LEVITRA [Concomitant]
  3. ATACAND [Concomitant]
  4. ATIVAN [Concomitant]
  5. PROSOM [Concomitant]
  6. FLAGYL [Concomitant]
  7. MILK OF MAGNESIUM [Concomitant]
  8. LASIX [Concomitant]
  9. SPIRIVA [Concomitant]
  10. APAP TAB [Concomitant]
  11. OXYCODONE HCL [Concomitant]
  12. BACTRIM [Concomitant]
  13. ASPIRIN [Concomitant]
  14. SYNTHROID [Concomitant]
  15. MELOXICAM [Concomitant]
  16. SEPTRA [Concomitant]
  17. ATENOLOL [Concomitant]
  18. PROTONIX [Concomitant]
  19. KEFLEX [Concomitant]
  20. TENORMIN [Concomitant]
  21. FLOMAX [Concomitant]
  22. NORCO [Concomitant]
  23. COREG [Concomitant]
  24. NITROGLYCERIN [Concomitant]
  25. VICODIN [Concomitant]
  26. MOBIC [Concomitant]
  27. CIPROFLOXACIN [Concomitant]
  28. ALBUTEROL [Concomitant]
  29. ZOCOR [Concomitant]
  30. DIGOXIN [Suspect]
     Indication: PRODUCT USED FOR UNKNOWN INDICATION
     Dosage: 0.125 MG;QD;PO
     Route: 048
     Dates: start: 20080108, end: 20080417
  31. LEVOTHYROXINE SODIUM [Concomitant]
  32. KLOR-CON [Concomitant]
  33. PREDNISONE TAB [Concomitant]

REACTIONS (54)
  - DIZZINESS [None]
  - OROPHARYNGEAL PAIN [None]
  - INITIAL INSOMNIA [None]
  - BENIGN PROSTATIC HYPERPLASIA [None]
  - MITRAL VALVE INCOMPETENCE [None]
  - MENIERE'S DISEASE [None]
  - PERIODIC LIMB MOVEMENT DISORDER [None]
  - ABDOMINAL PAIN [None]
  - CARDIAC FAILURE CONGESTIVE [None]
  - TINNITUS [None]
  - RENAL IMPAIRMENT [None]
  - EJECTION FRACTION DECREASED [None]
  - MITRAL VALVE CALCIFICATION [None]
  - DEHYDRATION [None]
  - VENOUS INSUFFICIENCY [None]
  - OSTEOARTHRITIS [None]
  - DIASTOLIC DYSFUNCTION [None]
  - INTRACARDIAC THROMBUS [None]
  - CHEST DISCOMFORT [None]
  - DYSPNOEA [None]
  - VERTIGO [None]
  - PULMONARY HYPERTENSION [None]
  - DIARRHOEA [None]
  - NAUSEA [None]
  - OEDEMA [None]
  - FATIGUE [None]
  - MALAISE [None]
  - DEPRESSION [None]
  - COUGH [None]
  - ANXIETY [None]
  - NEUROPATHY PERIPHERAL [None]
  - LEFT VENTRICULAR DYSFUNCTION [None]
  - BUNDLE BRANCH BLOCK LEFT [None]
  - VENTRICULAR HYPOKINESIA [None]
  - EXTRASYSTOLES [None]
  - NOCTURIA [None]
  - TREMOR [None]
  - HYPERTENSION [None]
  - MUSCULOSKELETAL PAIN [None]
  - PROSTATITIS [None]
  - DRUG INTOLERANCE [None]
  - SPINAL COLUMN STENOSIS [None]
  - BLOOD PRESSURE DECREASED [None]
  - TRICUSPID VALVE INCOMPETENCE [None]
  - ISCHAEMIC CARDIOMYOPATHY [None]
  - STRESS [None]
  - RASH [None]
  - BACK PAIN [None]
  - ASTHMA [None]
  - ARTHRALGIA [None]
  - HYPERHIDROSIS [None]
  - ERECTILE DYSFUNCTION [None]
  - AORTIC STENOSIS [None]
  - VENTRICULAR EXTRASYSTOLES [None]
